FAERS Safety Report 9896114 (Version 2)
Quarter: 2014Q1

REPORT INFORMATION
  Report Type: Spontaneous
  Country: US (occurrence: US)
  Receive Date: 20140213
  Receipt Date: 20140213
  Transmission Date: 20141002
  Serious: Yes (Other)
  Sender: FDA-Public Use
  Company Number: US-BRISTOL-MYERS SQUIBB COMPANY-19632736

PATIENT
  Age: 56 Year
  Sex: Female
  Weight: 72.56 kg

DRUGS (19)
  1. ORENCIA [Suspect]
     Indication: RHEUMATOID ARTHRITIS
     Dosage: LAST INFUSION(6TH): 07OCT2013
     Route: 042
     Dates: start: 20130530
  2. AFEDITAB [Concomitant]
     Dosage: AFEDITAB CR 60MG TAB,EXTENIDED RELEASE
     Dates: start: 20121107
  3. BENZOYL PEROXIDE [Concomitant]
     Dosage: APPLY EVERY OTHER NIGHT
     Dates: start: 20130412
  4. CEFPROZIL [Concomitant]
     Dosage: 250MG TABLET
     Dates: start: 20130710
  5. CELEBREX [Concomitant]
     Dosage: CELEBREX 200 MG CAP,1DF: 1CAP
     Route: 048
     Dates: start: 20130412
  6. VITAMIN B12 [Concomitant]
     Route: 060
     Dates: start: 20130412
  7. CYCLOBENZAPRINE [Concomitant]
     Dosage: CYCLOBENZAPRINE 10 MNG TAB,1DF: 1TAB
     Route: 048
     Dates: start: 20120522
  8. DIFFERIN [Concomitant]
     Dosage: DIFFERIN 0. 1% TOPICAL CREAM,AT BED TIME
     Route: 061
     Dates: start: 20130412
  9. DILTIAZEM HCL [Concomitant]
  10. DILTIAZEM ER [Concomitant]
     Dosage: DILTIAZEM ER(XR/XT) 240 MG CAPSULEEXTENDED RELEASE,CONTROLLED,1DF: 1CAP
     Route: 048
     Dates: start: 20130822
  11. FOLIC ACID [Concomitant]
     Dosage: FOLIC ACID 1 MG TAB,1DF: 1TAB
     Route: 048
     Dates: start: 20130412
  12. HYDROXYZINE HCL [Concomitant]
     Dosage: HYDROXYZINE HCI 50 MG TAB
     Dates: start: 20130725
  13. OMEPRAZOLE [Concomitant]
     Dosage: OMEPRAZOLE 40 MG CAPSULE,DELAYED RELEASE
     Route: 048
     Dates: start: 20130522
  14. POTASSIUM CHLORIDE [Concomitant]
     Dosage: POTASSIUMN CHLORIDE ER 10 MEQ TAB,EXTENDED RELEASE,1DF: 2TAB
     Route: 048
     Dates: start: 20130726
  15. PRAVASTATIN SODIUM [Concomitant]
     Dosage: PRAVASTATIN 10 MG TAB,1DF: 1TAB
     Route: 048
     Dates: start: 20130806
  16. RANITIDINE [Concomitant]
     Dosage: RANITIDINE 300 MG TAB,1DF: 1TAB
     Route: 048
     Dates: start: 20130117
  17. VITAMIN D3 [Concomitant]
     Dosage: VITAMIN D3 5,000 UNIT TAB,1DF: 1TAB
     Route: 048
     Dates: start: 20130412
  18. VOLTAREN [Concomitant]
     Dosage: VOLTAREN 1 % TOPICAL GEL
     Route: 061
     Dates: start: 20121107
  19. ZOLPIDEM [Concomitant]
     Dosage: ZOLPIDEM 10 MG TAB,1DF: 1TAB AT BED TIME
     Route: 048
     Dates: start: 20130214

REACTIONS (1)
  - Urticaria [Unknown]
